FAERS Safety Report 9587756 (Version 1)
Quarter: 2013Q4

REPORT INFORMATION
  Report Type: Spontaneous
  Country: GB (occurrence: GB)
  Receive Date: 20131003
  Receipt Date: 20131003
  Transmission Date: 20140711
  Serious: Yes (Death)
  Sender: FDA-Public Use
  Company Number: GB-BAUSCH-BL-2013-005302

PATIENT
  Sex: Male

DRUGS (2)
  1. DEXAMETHASONE [Suspect]
     Indication: PROSTATE CANCER
     Route: 065
  2. ABIRATERONE [Suspect]
     Indication: PROSTATE CANCER
     Route: 048

REACTIONS (3)
  - Disease progression [Fatal]
  - Malaise [Unknown]
  - Feeling abnormal [Unknown]
